FAERS Safety Report 15198497 (Version 1)
Quarter: 2018Q3

REPORT INFORMATION
  Report Type: Spontaneous
  Country: US (occurrence: US)
  Receive Date: 20180627
  Receipt Date: 20180627
  Transmission Date: 20181010
  Serious: Yes (Death)
  Sender: FDA-Public Use
  Company Number: None

PATIENT
  Sex: Male

DRUGS (20)
  1. BUPROPION. [Concomitant]
     Active Substance: BUPROPION
  2. TRAZODONE [Concomitant]
     Active Substance: TRAZODONE HYDROCHLORIDE
  3. ATORVASTATIN [Concomitant]
     Active Substance: ATORVASTATIN
  4. GLUCAGEN [Concomitant]
     Active Substance: GLUCAGON HYDROCHLORIDE
  5. NEPHRO?VITE [Concomitant]
  6. ACETAMIN [Concomitant]
     Active Substance: ACETAMINOPHEN
  7. SERTRALINE [Concomitant]
     Active Substance: SERTRALINE HYDROCHLORIDE
  8. NOVOLIN [Concomitant]
     Active Substance: INSULIN HUMAN
  9. SENEXON [Concomitant]
     Active Substance: SENNOSIDES A AND B
  10. BRIMONIDINE [Concomitant]
     Active Substance: BRIMONIDINE TARTRATE
  11. LANTUS [Concomitant]
     Active Substance: INSULIN GLARGINE
  12. RISPERIDONE. [Concomitant]
     Active Substance: RISPERIDONE
  13. RENAGEL [Concomitant]
     Active Substance: SEVELAMER HYDROCHLORIDE
  14. VITAMIN D2 [Concomitant]
     Active Substance: ERGOCALCIFEROL
  15. SENSIPAR [Suspect]
     Active Substance: CINACALCET HYDROCHLORIDE
     Indication: CHRONIC KIDNEY DISEASE
     Dosage: ?          OTHER FREQUENCY:3 TIMES WEEKLY;?
     Route: 048
     Dates: start: 20160810
  16. LEVOTHYROXIN [Concomitant]
     Active Substance: LEVOTHYROXINE
  17. RANITIDINE. [Concomitant]
     Active Substance: RANITIDINE
  18. BISACODYL. [Concomitant]
     Active Substance: BISACODYL
  19. GABAPENTIN. [Concomitant]
     Active Substance: GABAPENTIN
  20. OMEPRAZOLE. [Concomitant]
     Active Substance: OMEPRAZOLE

REACTIONS (1)
  - Death [None]
